FAERS Safety Report 23965060 (Version 1)
Quarter: 2024Q2

REPORT INFORMATION
  Report Type: Spontaneous
  Country: JP (occurrence: None)
  Receive Date: 20240612
  Receipt Date: 20240612
  Transmission Date: 20240716
  Serious: Yes (Other)
  Sender: FDA-Public Use
  Company Number: 2024A133034

PATIENT
  Age: 57 Year
  Sex: Female

DRUGS (1)
  1. FASLODEX [Suspect]
     Active Substance: FULVESTRANT
     Indication: Breast cancer female
     Dosage: DOSE UNKNOWN
     Route: 030

REACTIONS (5)
  - Injection site necrosis [Unknown]
  - Injection site scab [Unknown]
  - Decubitus ulcer [Unknown]
  - Dermatitis contact [Unknown]
  - Injection site induration [Unknown]

NARRATIVE: CASE EVENT DATE: 20230301
